FAERS Safety Report 5554957-6 (Version None)
Quarter: 2007Q4

REPORT INFORMATION
  Report Type: 
  Country: None (occurrence: None)
  Receive Date: 20071213
  Receipt Date: 20071205
  Transmission Date: 20080405
  Serious: Yes (Disabling)
  Sender: FDA-Public Use
  Company Number: DE-ASTRAZENECA-2007PK02356

PATIENT
  Age: 23041 Day
  Sex: Female
  Weight: 62 kg

DRUGS (2)
  1. ARIMIDEX [Suspect]
     Indication: BREAST CANCER FEMALE
     Route: 048
     Dates: start: 20070919, end: 20071106
  2. MEDICATION FOR PANCREATITIS [Concomitant]
     Indication: PANCREATITIS

REACTIONS (4)
  - HEADACHE [None]
  - HYPERTENSION [None]
  - HYPERTENSIVE CRISIS [None]
  - VERTIGO [None]
